FAERS Safety Report 5119401-1 (Version None)
Quarter: 2006Q3

REPORT INFORMATION
  Report Type: 
  Country: None (occurrence: None)
  Receive Date: 20060927
  Receipt Date: 20060919
  Transmission Date: 20061208
  Serious: Yes (Other)
  Sender: FDA-Public Use
  Company Number: B0439360A

PATIENT
  Age: 79 Year
  Sex: Female

DRUGS (7)
  1. PAROXETINE HCL [Suspect]
     Indication: DRUG USE FOR UNKNOWN INDICATION
     Dosage: 10 MG, PER DAY
  2. RISPERIDONE [Suspect]
     Indication: DRUG USE FOR UNKNOWN INDICATION
     Dosage: 25 MG/TWICE PER DAY
  3. AMLODIPINE [Concomitant]
  4. GALANTAMINE HYDROBROMIDE [Concomitant]
  5. DOCUSATE [Concomitant]
  6. CELECOXIB [Concomitant]
  7. CALCIUM CITRATE [Concomitant]

REACTIONS (8)
  - ANAEMIA [None]
  - BRAIN SCAN ABNORMAL [None]
  - CEREBRAL ATROPHY [None]
  - DRUG LEVEL CHANGED [None]
  - HYPOTHERMIA [None]
  - LETHARGY [None]
  - MUCOUS MEMBRANE DISORDER [None]
  - THROMBOCYTOPENIA [None]
